FAERS Safety Report 4640830-4 (Version None)
Quarter: 2005Q2

REPORT INFORMATION
  Report Type: 
  Country: None (occurrence: None)
  Receive Date: 20050328
  Receipt Date: 20041228
  Transmission Date: 20051028
  Serious: No
  Sender: FDA-Public Use
  Company Number: SP00380

PATIENT
  Age: 77 Year
  Sex: Female
  Weight: 74.8435 kg

DRUGS (6)
  1. XIFAXAN [Suspect]
     Indication: CROHN'S DISEASE
     Dosage: 400 MG/TID, TABLET
     Dates: start: 20041209, end: 20041223
  2. PENTASA [Concomitant]
  3. NEXIUM [Concomitant]
  4. NIASPAN [Concomitant]
  5. FOSAMAX [Concomitant]
  6. LIPITOR [Concomitant]

REACTIONS (2)
  - PRURITUS [None]
  - RASH ERYTHEMATOUS [None]
